FAERS Safety Report 4523393-3 (Version None)
Quarter: 2004Q4

REPORT INFORMATION
  Report Type: 
  Country: None (occurrence: None)
  Receive Date: 20041210
  Receipt Date: 20030929
  Transmission Date: 20050328
  Serious: Yes (Hospitalization, Other)
  Sender: FDA-Public Use
  Company Number: US-MERCK-0310USA00135

PATIENT
  Age: 62 Year
  Sex: Female
  Weight: 50 kg

DRUGS (7)
  1. VIOXX [Suspect]
     Route: 048
     Dates: start: 19970101, end: 20000101
  2. CYANOCOBALAMIN [Concomitant]
     Route: 065
  3. REGLAN [Concomitant]
     Route: 065
  4. NORVASC [Concomitant]
     Route: 065
  5. LORAZEPAM [Concomitant]
     Route: 065
  6. AGGRENOX [Concomitant]
     Route: 065
  7. ZOCOR [Concomitant]
     Route: 065

REACTIONS (47)
  - ABDOMINAL PAIN [None]
  - ABDOMINAL PAIN LOWER [None]
  - ANEURYSM [None]
  - ANGINA UNSTABLE [None]
  - ANOREXIA [None]
  - ANXIETY [None]
  - ANXIETY DISORDER [None]
  - AORTIC ANEURYSM [None]
  - ASTHENIA [None]
  - CARDIAC DISORDER [None]
  - CAROTID ARTERY OCCLUSION [None]
  - CEREBROVASCULAR ACCIDENT [None]
  - CHRONIC OBSTRUCTIVE AIRWAYS DISEASE [None]
  - COLONIC POLYP [None]
  - DECUBITUS ULCER [None]
  - DEPRESSION [None]
  - DIABETES MELLITUS [None]
  - DUODENAL ULCER [None]
  - DUODENAL ULCER HAEMORRHAGE [None]
  - EATING DISORDER [None]
  - EMOTIONAL DISTRESS [None]
  - EMPHYSEMA [None]
  - FACIAL PALSY [None]
  - FALL [None]
  - FOOT FRACTURE [None]
  - GASTRIC ULCER [None]
  - GASTROENTERITIS [None]
  - HAEMORRHAGE [None]
  - HEMIPARESIS [None]
  - HYPERTENSION [None]
  - INTESTINAL FUNCTIONAL DISORDER [None]
  - LEG AMPUTATION [None]
  - MICTURITION URGENCY [None]
  - MYOCARDIAL INFARCTION [None]
  - MYOCARDIAL ISCHAEMIA [None]
  - NAUSEA [None]
  - PERIPHERAL ISCHAEMIA [None]
  - PERIPHERAL VASCULAR DISORDER [None]
  - PYREXIA [None]
  - THROMBOSIS [None]
  - TOE AMPUTATION [None]
  - TOE DEFORMITY [None]
  - TRANSIENT ISCHAEMIC ATTACK [None]
  - UPPER GASTROINTESTINAL HAEMORRHAGE [None]
  - VENTRICULAR HYPERTROPHY [None]
  - VOMITING [None]
  - WOUND DEHISCENCE [None]
